FAERS Safety Report 9511976 (Version 4)
Quarter: 2013Q4

REPORT INFORMATION
  Report Type: Spontaneous
  Country: US (occurrence: US)
  Receive Date: 20130910
  Receipt Date: 20131106
  Transmission Date: 20140711
  Serious: Yes (Life-Threatening, Hospitalization, Other)
  Sender: FDA-Public Use
  Company Number: PHEH2008US011961

PATIENT
  Age: 62 Year
  Sex: Male
  Weight: 58.5 kg

DRUGS (52)
  1. ZOMETA [Suspect]
     Indication: PLASMA CELL MYELOMA
     Dosage: 4 MG,
     Route: 042
  2. ZOMETA [Suspect]
     Route: 042
     Dates: start: 200806
  3. THEOPHYLLINE [Concomitant]
     Dosage: 300 MG,
  4. FLOVENT [Concomitant]
     Dosage: 11 UG
  5. CELEBREX [Concomitant]
     Dosage: 200 MG
     Route: 048
  6. WARFARIN [Concomitant]
     Dosage: 5 MG
  7. PRAVACHOL [Concomitant]
     Dosage: 80 MG
  8. ALBUTEROL [Concomitant]
  9. ATROVENT [Concomitant]
  10. CIMETIDINE [Concomitant]
     Dosage: 300 MG, PRN
  11. DEXAMETHASONE [Concomitant]
     Dosage: 4 MG
  12. DEXAMETHASONE [Concomitant]
     Dosage: 14 MG, QD
  13. VIOXX [Concomitant]
     Dosage: 50 MG
  14. PREDNISONE [Concomitant]
  15. BUSPAR [Concomitant]
  16. ZOCOR ^DIECKMANN^ [Concomitant]
  17. ARANESP [Concomitant]
  18. OXYCONTIN [Concomitant]
     Dosage: 20 MG, BID
  19. THALIDOMIDE [Concomitant]
  20. THALIDOMIDE [Concomitant]
     Dosage: 100 MG, QD
     Dates: end: 200806
  21. RADIATION THERAPY [Concomitant]
  22. COLACE [Concomitant]
  23. LORTAB [Concomitant]
  24. SORBITOL [Concomitant]
  25. TAGAMET [Concomitant]
     Dosage: 300 MG, QD
  26. ZANTAC [Concomitant]
  27. FOSAMAX [Concomitant]
  28. NICOTINE [Concomitant]
  29. OXYGEN THERAPY [Concomitant]
  30. OXYGEN THERAPY [Concomitant]
  31. DECADRON                                /CAN/ [Concomitant]
  32. VELCADE [Concomitant]
  33. SENOKOT                                 /UNK/ [Concomitant]
  34. HYDROCODONE [Concomitant]
  35. OS-CAL [Concomitant]
  36. MORPHINE [Concomitant]
     Dosage: 15 MG, Q12H
  37. MORPHINE [Concomitant]
     Dosage: 15 MG, TID
  38. MORPHINE [Concomitant]
     Dosage: 15 MG, QD
  39. VENTOLIN [Concomitant]
  40. DOXYCYCLINE [Concomitant]
  41. ATENOLOL [Concomitant]
  42. MULTIVITAMINS [Concomitant]
  43. ENSURE [Concomitant]
  44. MS CONTIN [Concomitant]
  45. AMBIEN [Concomitant]
  46. KEFZOL [Concomitant]
  47. ANESTHETICS [Concomitant]
  48. LOPRESSOR [Concomitant]
  49. STOOL SOFTENER [Concomitant]
  50. OXYIR [Concomitant]
     Dosage: 5 MG, PRN
  51. ORAJEL [Concomitant]
  52. STEROIDS NOS [Concomitant]

REACTIONS (105)
  - Hypotension [Unknown]
  - Respiratory failure [Unknown]
  - Pneumothorax spontaneous [Recovered/Resolved with Sequelae]
  - Pulmonary oedema [Unknown]
  - Pleural effusion [Unknown]
  - Hypertension [Recovered/Resolved]
  - Atelectasis [Unknown]
  - Staphylococcal infection [Unknown]
  - Osteonecrosis of jaw [Unknown]
  - Injury [Unknown]
  - Pain [Unknown]
  - Anxiety [Unknown]
  - Anhedonia [Unknown]
  - Bone disorder [Unknown]
  - Pain in jaw [Unknown]
  - Dental caries [Unknown]
  - Gingival bleeding [Unknown]
  - Edentulous [Unknown]
  - Oedema mouth [Unknown]
  - Tinnitus [Unknown]
  - Neck injury [Unknown]
  - Arthritis [Unknown]
  - Asthma [Unknown]
  - Lung disorder [Unknown]
  - Dyspnoea [Unknown]
  - Plasma cell myeloma [Unknown]
  - Plasmacytoma [Recovered/Resolved with Sequelae]
  - Rectal haemorrhage [Recovering/Resolving]
  - Constipation [Recovered/Resolved]
  - Hypercalcaemia [Unknown]
  - Hypercholesterolaemia [Unknown]
  - Ulcer [Unknown]
  - Hiatus hernia [Unknown]
  - Cardiovascular disorder [Unknown]
  - Osteoporosis [Unknown]
  - Pneumonia [Recovering/Resolving]
  - Bronchitis [Unknown]
  - Chest pain [Recovering/Resolving]
  - Haemoptysis [Unknown]
  - Cataract [Unknown]
  - Spinal compression fracture [Unknown]
  - Rib fracture [Unknown]
  - Mass [Unknown]
  - Fistula discharge [Unknown]
  - Mitral valve incompetence [Unknown]
  - Spinal osteoarthritis [Unknown]
  - Subcutaneous emphysema [Unknown]
  - Pulmonary hilum mass [Unknown]
  - Spinal disorder [Unknown]
  - Musculoskeletal chest pain [Unknown]
  - Upper respiratory tract infection [Recovered/Resolved]
  - Nausea [Recovered/Resolved]
  - Vomiting [Unknown]
  - Abdominal pain [Unknown]
  - Inguinal hernia [Unknown]
  - Proteus infection [Unknown]
  - Metastases to bone [Unknown]
  - Left ventricular hypertrophy [Unknown]
  - Interstitial lung disease [Unknown]
  - Haemophilus infection [Unknown]
  - Rotator cuff syndrome [Unknown]
  - Muscle strain [Unknown]
  - Alcohol poisoning [Unknown]
  - Beta 2 microglobulin increased [Unknown]
  - Productive cough [Unknown]
  - Leukocytosis [Recovering/Resolving]
  - Monoclonal gammopathy [Recovering/Resolving]
  - Gingival pain [Unknown]
  - Mastication disorder [Unknown]
  - Tenderness [Unknown]
  - Nasopharyngitis [Recovering/Resolving]
  - Cough [Recovering/Resolving]
  - Blood pressure decreased [Unknown]
  - Heart rate increased [Not Recovered/Not Resolved]
  - Respiratory rate increased [Unknown]
  - Immunoglobulins increased [Unknown]
  - Infective exacerbation of chronic obstructive airways disease [Recovering/Resolving]
  - Rhonchi [Recovering/Resolving]
  - Decreased activity [Unknown]
  - Neck pain [Unknown]
  - Abscess oral [Unknown]
  - Enterocutaneous fistula [Recovering/Resolving]
  - Dizziness [Unknown]
  - Abdominal distension [Recovering/Resolving]
  - Fatigue [Unknown]
  - Hunger [Unknown]
  - Prothrombin time prolonged [Unknown]
  - Bursitis [Unknown]
  - Renal cyst [Unknown]
  - Nephrolithiasis [Unknown]
  - Proctitis [Unknown]
  - Flank pain [Recovering/Resolving]
  - Gastroenteritis radiation [Unknown]
  - Rectal injury [Unknown]
  - Vertebral foraminal stenosis [Unknown]
  - Intervertebral disc space narrowing [Unknown]
  - Aortic calcification [Unknown]
  - Aortic arteriosclerosis [Unknown]
  - Upper limb fracture [Unknown]
  - Anaemia [Unknown]
  - Swelling [Unknown]
  - Sinus disorder [Unknown]
  - Spinal deformity [Unknown]
  - Pathological fracture [Unknown]
  - Hyperkalaemia [Unknown]
